FAERS Safety Report 19389529 (Version 1)
Quarter: 2021Q2

REPORT INFORMATION
  Report Type: Spontaneous
  Country: US (occurrence: US)
  Receive Date: 20210608
  Receipt Date: 20210608
  Transmission Date: 20210717
  Serious: Yes (Other)
  Sender: FDA-Public Use
  Company Number: US-PFIZER INC-2021280761

PATIENT
  Sex: Female

DRUGS (1)
  1. SERTRALINE HCL [Suspect]
     Active Substance: SERTRALINE HYDROCHLORIDE
     Dosage: UNK

REACTIONS (8)
  - Headache [Unknown]
  - Dizziness [Unknown]
  - Migraine [Unknown]
  - Thinking abnormal [Unknown]
  - Suicidal behaviour [Unknown]
  - Drug level decreased [Unknown]
  - Nausea [Unknown]
  - Crying [Unknown]
